FAERS Safety Report 13241535 (Version 1)
Quarter: 2017Q1

REPORT INFORMATION
  Report Type: Spontaneous
  Country: US (occurrence: US)
  Receive Date: 20170216
  Receipt Date: 20170216
  Transmission Date: 20170428
  Serious: Yes (Hospitalization)
  Sender: FDA-Public Use
  Company Number: None

PATIENT
  Age: 62 Year
  Sex: Male
  Weight: 88.5 kg

DRUGS (14)
  1. AMLODIPINE [Concomitant]
     Active Substance: AMLODIPINE BESYLATE
  2. ATORVASTATIN [Concomitant]
     Active Substance: ATORVASTATIN
  3. GOLIMUMAB [Concomitant]
     Active Substance: GOLIMUMAB
  4. URSODIOL. [Concomitant]
     Active Substance: URSODIOL
  5. METHOTREXATE. [Concomitant]
     Active Substance: METHOTREXATE
  6. ABRAXANE [Suspect]
     Active Substance: PACLITAXEL
  7. QUINAPRIL. [Concomitant]
     Active Substance: QUINAPRIL
  8. NITROGLYCERIN. [Concomitant]
     Active Substance: NITROGLYCERIN
  9. METFORMIN [Concomitant]
     Active Substance: METFORMIN HYDROCHLORIDE
  10. FOLIC ACID. [Concomitant]
     Active Substance: FOLIC ACID
  11. METOPROLOL. [Suspect]
     Active Substance: METOPROLOL
  12. FOLFOX [Suspect]
     Active Substance: FLUOROURACIL\LEUCOVORIN CALCIUM\OXALIPLATIN
     Indication: PANCREATIC CARCINOMA
  13. GABAPENTIN. [Concomitant]
     Active Substance: GABAPENTIN
  14. PRADAXA [Concomitant]
     Active Substance: DABIGATRAN ETEXILATE MESYLATE

REACTIONS (1)
  - Pancreatitis [None]

NARRATIVE: CASE EVENT DATE: 20170212
